FAERS Safety Report 14320077 (Version 5)
Quarter: 2018Q3

REPORT INFORMATION
  Report Type: Report from Study
  Country: DE (occurrence: DE)
  Receive Date: 20171222
  Receipt Date: 20180823
  Transmission Date: 20181010
  Serious: Yes (Death)
  Sender: FDA-Public Use
  Company Number: DE-PFIZER INC-2017539542

PATIENT

DRUGS (10)
  1. IDARUBICIN HCL [Suspect]
     Active Substance: IDARUBICIN HYDROCHLORIDE
     Indication: ACUTE PROMYELOCYTIC LEUKAEMIA
     Dosage: 12 MG/M2, 1X/DAY (12MG/M?/D GIVEN AS AN INTRAVENOUS BOLUS DOSE ON DAYS 2, 4, 6 AND 8)
     Route: 040
  2. MERCAPTOPURINE. [Suspect]
     Active Substance: MERCAPTOPURINE
     Dosage: UNK (DISCONTINUED IF WBC WAS LESS THAN 2.5 X 10^9/L)
  3. TRETINOIN. [Suspect]
     Active Substance: TRETINOIN
     Indication: ACUTE PROMYELOCYTIC LEUKAEMIA
     Dosage: 25 MG/M2, 1X/DAY (INDUCTION FOR PATIENTS 20 YEARS OF AGE OR YOUNGER, THE ATRA WAS ADJUST TO 25MG/M2)
     Route: 048
  4. MERCAPTOPURINE. [Suspect]
     Active Substance: MERCAPTOPURINE
     Dosage: 25 MG/M2, 1X/DAY (WBC COUNT WAS LESS THAN 3.5 X 10^9/L, MAINTENANCE THERAPY)
     Route: 048
  5. IDARUBICIN HCL [Suspect]
     Active Substance: IDARUBICIN HYDROCHLORIDE
     Dosage: UNK (INDUCTION THERAPY, CONSOLIDATION THERAPY, MAINTENANCE THERAPY)
  6. TRETINOIN. [Suspect]
     Active Substance: TRETINOIN
     Dosage: 45 MG/M2, 1X/DAY (CONSOLIDATION: 45 MG/M2/D) WAS GIVEN ON DAYS 1 THROUGH 15)
  7. MERCAPTOPURINE. [Suspect]
     Active Substance: MERCAPTOPURINE
     Dosage: 50 MG/M2, 1X/DAY (NEGATIVE FOR PML/RARA STARTED ON ORAL MERCAPTOPURINE (50 MG/M?/D),15D/3MO, 2Y)
     Route: 048
  8. TRETINOIN. [Suspect]
     Active Substance: TRETINOIN
     Dosage: UNK (INDUCTION: 45MG/M?/D), 2 DAILY DOSES,  UNTIL COMPLETE HEMATOLOGIC REMISSION, OR MAX. 90 DAYS)
     Route: 048
  9. METHOTREXATE SODIUM. [Concomitant]
     Active Substance: METHOTREXATE SODIUM
     Dosage: 15 MG/M2, WEEKLY (INTRAMUSCULAR METHOTREXATE (15 MG/M?/WK), 15 D/3 MO, 2 Y, MAINTENANCE THERAPY)
     Route: 030
  10. TRETINOIN. [Suspect]
     Active Substance: TRETINOIN
     Dosage: 45 MG/M2, 1X/DAY (ORAL ATRA (45 MG/M?/D) FOR 15 DAYS EVERY 3 MONTHS. 2 YEARS)
     Route: 048

REACTIONS (1)
  - Haemorrhage [Fatal]
